FAERS Safety Report 20808240 (Version 1)
Quarter: 2022Q2

REPORT INFORMATION
  Report Type: Spontaneous
  Country: BE (occurrence: BE)
  Receive Date: 20220510
  Receipt Date: 20220510
  Transmission Date: 20220721
  Serious: Yes (Other)
  Sender: FDA-Public Use
  Company Number: BE-NOVARTISPH-NVSC2022BE103799

PATIENT
  Age: 62 Year
  Sex: Female
  Weight: 66 kg

DRUGS (5)
  1. LEUCOVORIN CALCIUM [Suspect]
     Active Substance: LEUCOVORIN CALCIUM
     Indication: Product used for unknown indication
     Dosage: 800 MG(FOLINATE EG)
     Route: 042
  2. FLUOROURACIL [Suspect]
     Active Substance: FLUOROURACIL
     Indication: Product used for unknown indication
     Dosage: 700 MG
     Route: 042
  3. PALONOSETRON [Suspect]
     Active Substance: PALONOSETRON
     Indication: Product used for unknown indication
     Dosage: 250 UG(PALONOSETRON EG)
     Route: 042
  4. OXALIPLATIN [Suspect]
     Active Substance: OXALIPLATIN
     Indication: Product used for unknown indication
     Dosage: 140 MG(200 MG/40 MLRECEIVED 2 ADMINISTRATIONS)
     Route: 042
     Dates: start: 20220222, end: 20220314
  5. METHYLPREDNISOLONE SODIUM SUCCINATE [Suspect]
     Active Substance: METHYLPREDNISOLONE SODIUM SUCCINATE
     Indication: Product used for unknown indication
     Dosage: 40 UG
     Route: 042

REACTIONS (4)
  - Pharyngeal dyskinesia [Unknown]
  - Dyskinesia [Unknown]
  - Gait disturbance [Not Recovered/Not Resolved]
  - Neuropathy peripheral [Not Recovered/Not Resolved]

NARRATIVE: CASE EVENT DATE: 20220308
